FAERS Safety Report 22645093 (Version 1)
Quarter: 2023Q2

REPORT INFORMATION
  Report Type: Spontaneous
  Country: US (occurrence: US)
  Receive Date: 20230627
  Receipt Date: 20230627
  Transmission Date: 20230722
  Serious: No
  Sender: FDA-Public Use
  Company Number: US-ALKERMES INC.-ALK-2023-002482

PATIENT
  Sex: Female

DRUGS (2)
  1. VIVITROL [Suspect]
     Active Substance: NALTREXONE
     Indication: Asthma
     Dosage: 380 MILLIGRAM, QMO
     Route: 030
     Dates: start: 202305
  2. VIVITROL [Suspect]
     Active Substance: NALTREXONE
     Indication: Aortic aneurysm

REACTIONS (2)
  - Off label use [Unknown]
  - Fatigue [Unknown]
